FAERS Safety Report 11184047 (Version 1)
Quarter: 2015Q2

REPORT INFORMATION
  Report Type: Spontaneous
  Country: US (occurrence: US)
  Receive Date: 20150612
  Receipt Date: 20150612
  Transmission Date: 20150821
  Serious: Yes (Other)
  Sender: FDA-Public Use
  Company Number: US-JNJFOC-20150601314

PATIENT
  Age: 69 Year

DRUGS (1)
  1. IBRUTINIB [Suspect]
     Active Substance: IBRUTINIB
     Indication: MANTLE CELL LYMPHOMA
     Route: 048

REACTIONS (6)
  - Lung neoplasm malignant [Unknown]
  - Respiratory tract infection [Unknown]
  - Disease progression [Unknown]
  - Atrial fibrillation [Unknown]
  - Haemorrhage [Unknown]
  - Myelodysplastic syndrome [Unknown]
